FAERS Safety Report 7918072 (Version 4)
Quarter: 2013Q4

REPORT INFORMATION
  Report Type: Spontaneous
  Country: US (occurrence: US)
  Receive Date: 20110428
  Receipt Date: 20131011
  Transmission Date: 20140711
  Serious: Yes (Hospitalization)
  Sender: FDA-Public Use
  Company Number: US-ASTRAZENECA-2010SE36347

PATIENT
  Age: 49 Year
  Sex: Male

DRUGS (1)
  1. ZOMIG [Suspect]
     Indication: MIGRAINE
     Route: 045
     Dates: start: 2010

REACTIONS (4)
  - Migraine [Unknown]
  - Stress [Unknown]
  - Drug dose omission [Unknown]
  - Intentional drug misuse [Unknown]
